FAERS Safety Report 5820171-X (Version None)
Quarter: 2008Q3

REPORT INFORMATION
  Report Type: 
  Country: None (occurrence: None)
  Receive Date: 20080724
  Receipt Date: 20080716
  Transmission Date: 20090109
  Serious: Yes (Other)
  Sender: FDA-Public Use
  Company Number: PHEH2008US06349

PATIENT
  Sex: Female

DRUGS (2)
  1. TEKTURNA [Suspect]
     Dosage: 75 MG, UNK
  2. TEKTURNA [Suspect]
     Dosage: 1/2 DOSE

REACTIONS (5)
  - GASTROINTESTINAL HAEMORRHAGE [None]
  - GASTROINTESTINAL OEDEMA [None]
  - HYPOTENSION [None]
  - OEDEMA PERIPHERAL [None]
  - STOMACH DISCOMFORT [None]
